FAERS Safety Report 10553752 (Version 1)
Quarter: 2014Q4

REPORT INFORMATION
  Report Type: Spontaneous
  Country: US (occurrence: None)
  Receive Date: 20141023
  Receipt Date: 20141023
  Transmission Date: 20150529
  Serious: No
  Sender: FDA-Public Use
  Company Number: AP356-01242-SPO-US

PATIENT
  Age: 51 Year
  Sex: Female

DRUGS (3)
  1. BELVIQ [Suspect]
     Active Substance: LORCASERIN HYDROCHLORIDE
     Indication: WEIGHT CONTROL
     Dosage: 20 MG DAILY, UNKNOWN, ORAL
     Route: 048
     Dates: start: 20140723, end: 20140811
  2. BLOOD PRESSURE MEDICATION (ANTIHYPERTENSIVES) [Concomitant]
  3. THYROID MEDICATION (THYROID THERAPY) [Concomitant]

REACTIONS (3)
  - Oedema peripheral [None]
  - Crying [None]
  - Fatigue [None]

NARRATIVE: CASE EVENT DATE: 20140802
